FAERS Safety Report 21198858 (Version 1)
Quarter: 2022Q3

REPORT INFORMATION
  Report Type: Spontaneous
  Country: US (occurrence: US)
  Receive Date: 20220811
  Receipt Date: 20220811
  Transmission Date: 20221026
  Serious: No
  Sender: FDA-Public Use
  Company Number: US-BRISTOL-MYERS SQUIBB COMPANY-2022-085407

PATIENT
  Age: 41 Year
  Sex: Female

DRUGS (2)
  1. OPDIVO [Suspect]
     Active Substance: NIVOLUMAB
     Indication: Hereditary non-polyposis colorectal cancer syndrome
     Dosage: STRENGTH AND PRESENTATION OF THE AE : OPDIVO: 100 MG VIAL AND 120 MG VIAL
     Route: 065
  2. YERVOY [Suspect]
     Active Substance: IPILIMUMAB
     Indication: Hereditary non-polyposis colorectal cancer syndrome
     Dosage: STRENGTH-YERVOY: 50 MG VIAL
     Route: 065

REACTIONS (1)
  - Vitamin K decreased [Unknown]
